FAERS Safety Report 23720772 (Version 2)
Quarter: 2024Q2

REPORT INFORMATION
  Report Type: Spontaneous
  Country: US (occurrence: US)
  Receive Date: 20240409
  Receipt Date: 20240430
  Transmission Date: 20240716
  Serious: Yes (Other)
  Sender: FDA-Public Use
  Company Number: US-AMGEN-USASP2024066521

PATIENT
  Age: 78 Year
  Sex: Female

DRUGS (1)
  1. REPATHA [Suspect]
     Active Substance: EVOLOCUMAB
     Indication: Blood cholesterol abnormal
     Dosage: 140 MILLIGRAM
     Route: 058

REACTIONS (8)
  - Intracranial aneurysm [Unknown]
  - Accident [Unknown]
  - Fall [Unknown]
  - Head injury [Unknown]
  - Accidental exposure to product [Unknown]
  - Device use error [Unknown]
  - Product storage error [Unknown]
  - Product administration error [Unknown]

NARRATIVE: CASE EVENT DATE: 20210101
